FAERS Safety Report 12693452 (Version 1)
Quarter: 2016Q3

REPORT INFORMATION
  Report Type: Spontaneous
  Country: US (occurrence: US)
  Receive Date: 20160829
  Receipt Date: 20160829
  Transmission Date: 20161109
  Serious: No
  Sender: FDA-Public Use
  Company Number: US-GLAXOSMITHKLINE-US2016GSK120403

PATIENT
  Sex: Female

DRUGS (2)
  1. IMITREX [Suspect]
     Active Substance: SUMATRIPTAN SUCCINATE
     Indication: MIGRAINE
     Dosage: UNK
  2. ELAVIL [Suspect]
     Active Substance: AMITRIPTYLINE HYDROCHLORIDE
     Indication: MIGRAINE
     Dosage: UNK

REACTIONS (10)
  - Migraine [Unknown]
  - Headache [Unknown]
  - Photophobia [Unknown]
  - Dehydration [Unknown]
  - Vomiting [Unknown]
  - Drug ineffective [Unknown]
  - Nausea [Unknown]
  - Pain [Unknown]
  - Dizziness [Unknown]
  - Diarrhoea [Unknown]
